FAERS Safety Report 5925422-9 (Version None)
Quarter: 2008Q4

REPORT INFORMATION
  Report Type: 
  Country: None (occurrence: None)
  Receive Date: 20081020
  Receipt Date: 20081020
  Transmission Date: 20090506
  Serious: No
  Sender: FDA-Public Use
  Company Number: None

PATIENT
  Age: 76 Year
  Weight: 81.6475 kg

DRUGS (1)
  1. DIPHENHYDRAMINE 25MG LNK INTERNATIONAL FOR COSTCO [Suspect]
     Indication: INSOMNIA
     Dosage: 25MG HS PO
     Route: 048
     Dates: start: 20080701, end: 20081010

REACTIONS (2)
  - BALANCE DISORDER [None]
  - COORDINATION ABNORMAL [None]
